FAERS Safety Report 10045902 (Version 1)
Quarter: 2014Q1

REPORT INFORMATION
  Report Type: Report from Study
  Country: US (occurrence: US)
  Receive Date: 20140329
  Receipt Date: 20140329
  Transmission Date: 20141002
  Serious: Yes (Other)
  Sender: FDA-Public Use
  Company Number: US-ROCHE-1371643

PATIENT
  Sex: Male
  Weight: 77.18 kg

DRUGS (6)
  1. TEMODAR [Concomitant]
     Indication: GLIOBLASTOMA MULTIFORME
     Route: 048
  2. VP-16 [Concomitant]
     Indication: GLIOBLASTOMA MULTIFORME
     Route: 048
  3. SERTRALINE [Concomitant]
     Indication: DEPRESSION
     Route: 048
  4. RITALIN [Concomitant]
     Indication: FATIGUE
     Route: 048
  5. AVASTIN [Suspect]
     Indication: GLIOBLASTOMA MULTIFORME
     Route: 042
     Dates: start: 2012
  6. AVASTIN [Suspect]
     Route: 042
     Dates: start: 2013

REACTIONS (4)
  - Deafness bilateral [Not Recovered/Not Resolved]
  - Hypertension [Not Recovered/Not Resolved]
  - Back pain [Not Recovered/Not Resolved]
  - Protein urine present [Not Recovered/Not Resolved]
